FAERS Safety Report 8569214-3 (Version None)
Quarter: 2012Q3

REPORT INFORMATION
  Report Type: 
  Country: None (occurrence: None)
  Receive Date: 20120803
  Receipt Date: 20120615
  Transmission Date: 20120928
  Serious: No
  Sender: FDA-Public Use
  Company Number: US-ABBOTT-12P-163-0946464-00

PATIENT
  Sex: Female

DRUGS (6)
  1. NIASPAN [Suspect]
     Dosage: SOMETIMES AT BEDTIME AND SOMETIMES DURING DAY
     Route: 048
  2. UNKNOWN NASAL ALLERGY SPRAY [Concomitant]
     Indication: PRODUCT USED FOR UNKNOWN INDICATION
     Route: 048
  3. NIASPAN [Suspect]
     Indication: PRODUCT USED FOR UNKNOWN INDICATION
     Dosage: SOMETIMES AT BEDTIME AND SOMETIMES DURING DAY
     Route: 048
     Dates: start: 20120514
  4. ASPIRIN [Concomitant]
     Indication: PROPHYLAXIS
     Dosage: 30 MIN PRIOR TO DOSE OF NIASPAN
     Route: 048
  5. ALAVERT [Concomitant]
     Indication: PRODUCT USED FOR UNKNOWN INDICATION
     Route: 048
  6. SINGULAIR [Concomitant]
     Indication: PRODUCT USED FOR UNKNOWN INDICATION
     Route: 048

REACTIONS (4)
  - FLUSHING [None]
  - PARAESTHESIA [None]
  - PRURITUS [None]
  - FEELING HOT [None]
